FAERS Safety Report 9392006 (Version 2)
Quarter: 2013Q3

REPORT INFORMATION
  Report Type: Spontaneous
  Country: US (occurrence: US)
  Receive Date: 20130709
  Receipt Date: 20130830
  Transmission Date: 20140515
  Serious: Yes (Hospitalization)
  Sender: FDA-Public Use
  Company Number: US-ELI_LILLY_AND_COMPANY-US201307000220

PATIENT
  Age: 32 Year
  Sex: Male

DRUGS (6)
  1. HUMALOG LISPRO [Suspect]
     Indication: TYPE 1 DIABETES MELLITUS
     Dosage: UNK
     Dates: start: 2005
  2. HUMALOG LISPRO [Suspect]
     Dosage: UNK
  3. NOVOLOG [Suspect]
     Dosage: UNK
     Dates: start: 20130622, end: 20130623
  4. LANTUS [Concomitant]
  5. SYNTHROID [Concomitant]
     Dosage: 100 UG, UNKNOWN
  6. VITAMIN D                          /00107901/ [Concomitant]
     Dosage: 50000 U, UNKNOWN

REACTIONS (9)
  - Chest pain [Recovered/Resolved]
  - Palpitations [Recovered/Resolved]
  - Abdominal discomfort [Unknown]
  - Nausea [Unknown]
  - Hyperhidrosis [Unknown]
  - Blood glucose increased [Recovered/Resolved]
  - Glycosylated haemoglobin increased [Unknown]
  - Blood glucose decreased [Unknown]
  - Injection site pain [Unknown]
